FAERS Safety Report 8257816-3 (Version None)
Quarter: 2012Q2

REPORT INFORMATION
  Report Type: 
  Country: None (occurrence: None)
  Receive Date: 20120404
  Receipt Date: 20120329
  Transmission Date: 20120825
  Serious: No
  Sender: FDA-Public Use
  Company Number: US-BIOGENIDEC-2012BI011197

PATIENT
  Age: 59 Year
  Sex: Male

DRUGS (3)
  1. AVONEX [Concomitant]
     Route: 030
     Dates: start: 20010101
  2. TYSABRI [Suspect]
     Indication: MULTIPLE SCLEROSIS
     Route: 042
     Dates: start: 20091230
  3. AVONEX [Concomitant]
     Indication: MULTIPLE SCLEROSIS
     Route: 030
     Dates: start: 20091201

REACTIONS (5)
  - BLOOD GLUCOSE DECREASED [None]
  - FEELING ABNORMAL [None]
  - ARTHROPATHY [None]
  - ARTHRALGIA [None]
  - MUSCULOSKELETAL DISORDER [None]
